FAERS Safety Report 4300295-9 (Version None)
Quarter: 2004Q1

REPORT INFORMATION
  Report Type: 
  Country: None (occurrence: None)
  Receive Date: 20040218
  Receipt Date: 20040202
  Transmission Date: 20041129
  Serious: Yes (Other)
  Sender: FDA-Public Use
  Company Number: USA040258263

PATIENT
  Age: 83 Year
  Sex: Female

DRUGS (7)
  1. FORTEO [Suspect]
     Dates: start: 20030901
  2. FOSAMAX [Concomitant]
  3. LASIX [Concomitant]
  4. BENICAR (BENICAR) [Concomitant]
  5. DILTIAZEM [Concomitant]
  6. LIPITOR [Concomitant]
  7. TEMAZEPAM [Concomitant]

REACTIONS (1)
  - LEUKAEMIA [None]
